FAERS Safety Report 7451135-0 (Version None)
Quarter: 2011Q2

REPORT INFORMATION
  Report Type: 
  Country: None (occurrence: None)
  Receive Date: 20110502
  Receipt Date: 20110419
  Transmission Date: 20111010
  Serious: Yes (Other)
  Sender: FDA-Public Use
  Company Number: PHHY2011IT35574

PATIENT
  Age: 35 Year
  Sex: Male

DRUGS (1)
  1. EXTAVIA [Suspect]
     Dosage: UNK UKN, UNK

REACTIONS (2)
  - MONOPLEGIA [None]
  - BURNING SENSATION [None]
